FAERS Safety Report 4624830-6 (Version None)
Quarter: 2005Q2

REPORT INFORMATION
  Report Type: 
  Country: None (occurrence: None)
  Receive Date: 20050401
  Receipt Date: 20050318
  Transmission Date: 20051028
  Serious: Yes (Death, Hospitalization)
  Sender: FDA-Public Use
  Company Number: JP-JNJFOC-20040801943

PATIENT
  Sex: Male
  Weight: 63.5 kg

DRUGS (16)
  1. REMICADE [Suspect]
     Route: 042
  2. REMICADE [Suspect]
     Indication: RHEUMATOID ARTHRITIS
     Route: 042
  3. RHEUMATREX [Concomitant]
     Indication: RHEUMATOID ARTHRITIS
     Route: 049
  4. PREDONIN [Concomitant]
     Indication: RHEUMATOID ARTHRITIS
     Route: 049
  5. PREDONIN [Concomitant]
     Dosage: START DATE: BEFORE 06-JUL-2004
     Route: 042
  6. VOLTAREN [Concomitant]
     Dosage: START DATE: BEFORE 26-JAN-2004.
  7. FOLIAMIN [Concomitant]
     Dosage: START DATE: BEFORE 26-JAN-2004.
     Route: 049
  8. ZANTAC [Concomitant]
     Indication: GASTRIC ULCER
     Dosage: START DATE: BEFORE 26-JAN-2004
     Route: 049
  9. ALUMINUM HYDROXIDE AND MAGNESIUM TRISILICATE [Concomitant]
     Route: 049
  10. ALUMINUM HYDROXIDE AND MAGNESIUM TRISILICATE [Concomitant]
     Indication: GASTRIC ULCER
     Dosage: START DATE: BEFORE 26-JAN-2004
     Route: 049
  11. CYTOTEC [Concomitant]
     Indication: GASTRIC ULCER
     Dosage: START DATE: BEFORE 26-JAN-2004
     Route: 049
  12. HARNAL [Concomitant]
     Dosage: START DATE: BEFORE 26-JAN-2004.
     Route: 049
  13. SIGMART [Concomitant]
     Dosage: START DATE: BEFORE 26-JAN-2004.
     Route: 049
  14. HERBESSER [Concomitant]
     Dosage: START DATE: BEFORE 26-JAN-2004.
     Route: 049
  15. NITRODERM [Concomitant]
     Dosage: START DATE: BEFORE 26-JAN-2004.
  16. LUDIOMIL [Concomitant]
     Indication: DEPRESSION
     Dosage: START DATE: BEFORE 26-JAN-2004.
     Route: 049

REACTIONS (9)
  - ACUTE MYOCARDIAL INFARCTION [None]
  - BLOOD GLUCOSE INCREASED [None]
  - BLOOD UREA INCREASED [None]
  - BURNING SENSATION [None]
  - CARDIAC FAILURE [None]
  - CONTUSION [None]
  - FALL [None]
  - HOT FLUSH [None]
  - SEPTIC SHOCK [None]
